FAERS Safety Report 8089215-1 (Version None)
Quarter: 2012Q1

REPORT INFORMATION
  Report Type: 
  Country: None (occurrence: None)
  Receive Date: 20120128
  Receipt Date: 20110620
  Transmission Date: 20120608
  Serious: No
  Sender: FDA-Public Use
  Company Number: US-ABBOTT-11P-163-0733031-00

PATIENT
  Sex: Male
  Weight: 113.5 kg

DRUGS (1)
  1. HUMIRA [Suspect]
     Indication: PSORIASIS
     Dates: start: 20110531, end: 20110601

REACTIONS (6)
  - RETCHING [None]
  - BALANCE DISORDER [None]
  - SKIN WARM [None]
  - HEADACHE [None]
  - LETHARGY [None]
  - DIZZINESS [None]
